FAERS Safety Report 8019216-0 (Version None)
Quarter: 2011Q4

REPORT INFORMATION
  Report Type: 
  Country: None (occurrence: None)
  Receive Date: 20111227
  Receipt Date: 20111213
  Transmission Date: 20120403
  Serious: Yes (Hospitalization, Other)
  Sender: FDA-Public Use
  Company Number: CIP11002939

PATIENT
  Age: 75 Year
  Sex: Female

DRUGS (1)
  1. ACTONEL [Suspect]
     Dosage: DOSAGE / ORAL
     Route: 048

REACTIONS (6)
  - FEMUR FRACTURE [None]
  - PAIN IN EXTREMITY [None]
  - GROIN PAIN [None]
  - BACK PAIN [None]
  - STRESS FRACTURE [None]
  - FRACTURE DELAYED UNION [None]
